FAERS Safety Report 11235388 (Version 6)
Quarter: 2015Q4

REPORT INFORMATION
  Report Type: Spontaneous
  Country: US (occurrence: US)
  Receive Date: 20150702
  Receipt Date: 20151125
  Transmission Date: 20160304
  Serious: Yes (Hospitalization, Other)
  Sender: FDA-Public Use
  Company Number: US-JNJFOC-20150700385

PATIENT
  Age: 74 Year
  Sex: Male

DRUGS (13)
  1. FERROUS SULFATE [Concomitant]
     Active Substance: FERROUS SULFATE\FERROUS SULFATE, DRIED
  2. MULTIVITAMINS [Concomitant]
     Active Substance: VITAMINS
  3. LEVAQUIN LEVA-PAK [Concomitant]
  4. VITAMIN E\VITAMINS [Concomitant]
     Active Substance: .ALPHA.-TOCOPHEROL\VITAMINS
  5. ALLOPURINOL. [Concomitant]
     Active Substance: ALLOPURINOL
  6. VITAMIN C [Concomitant]
     Active Substance: ASCORBIC ACID
  7. OSTEO BI-FLEX [Concomitant]
     Active Substance: CHONDROITIN SULFATE A\GLUCOSAMINE
  8. IMBRUVICA [Suspect]
     Active Substance: IBRUTINIB
     Indication: CHRONIC LYMPHOCYTIC LEUKAEMIA
     Route: 048
     Dates: start: 20140819, end: 20150422
  9. IMBRUVICA [Suspect]
     Active Substance: IBRUTINIB
     Indication: CHRONIC LYMPHOCYTIC LEUKAEMIA
     Route: 048
     Dates: start: 20150423, end: 201506
  10. CAPTOPRIL. [Concomitant]
     Active Substance: CAPTOPRIL
  11. ATENOLOL. [Concomitant]
     Active Substance: ATENOLOL
  12. COMPAZINE [Concomitant]
     Active Substance: PROCHLORPERAZINE MALEATE
  13. ARANESP [Concomitant]
     Active Substance: DARBEPOETIN ALFA
     Dosage: 60 MCG, Q2W
     Route: 058
     Dates: end: 20140121

REACTIONS (9)
  - Skin cancer [Unknown]
  - Diarrhoea [Unknown]
  - Anaemia [Recovering/Resolving]
  - Plantar fasciitis [Unknown]
  - Pancreatitis acute [Recovered/Resolved]
  - Upper respiratory tract infection [Unknown]
  - Atrial fibrillation [Unknown]
  - Pollakiuria [Unknown]
  - Flatulence [Unknown]

NARRATIVE: CASE EVENT DATE: 2014
